FAERS Safety Report 16116461 (Version 1)
Quarter: 2019Q1

REPORT INFORMATION
  Report Type: Spontaneous
  Country: US (occurrence: US)
  Receive Date: 20190326
  Receipt Date: 20190326
  Transmission Date: 20190418
  Serious: No
  Sender: FDA-Public Use
  Company Number: US-ELI_LILLY_AND_COMPANY-US201903006179

PATIENT
  Sex: Female

DRUGS (2)
  1. HUMALOG [Suspect]
     Active Substance: INSULIN LISPRO
     Indication: GESTATIONAL DIABETES
     Dosage: UNK, UNKNOWN
     Route: 065
     Dates: start: 20190131
  2. TRESIBA [Concomitant]
     Active Substance: INSULIN DEGLUDEC
     Indication: GESTATIONAL DIABETES
     Dosage: 30 IU, EACH EVENING
     Route: 065

REACTIONS (3)
  - Product dose omission [Unknown]
  - Blood glucose increased [Unknown]
  - Maternal exposure during pregnancy [Unknown]

NARRATIVE: CASE EVENT DATE: 20190308
